FAERS Safety Report 18681572 (Version 1)
Quarter: 2020Q4

REPORT INFORMATION
  Report Type: Spontaneous
  Country: FR (occurrence: FR)
  Receive Date: 20201230
  Receipt Date: 20201230
  Transmission Date: 20210114
  Serious: Yes (Disabling)
  Sender: FDA-Public Use
  Company Number: FR-TEVA-2020-FR-1862883

PATIENT
  Age: 45 Year
  Sex: Female
  Weight: 70 kg

DRUGS (8)
  1. PREGABALINE [Suspect]
     Active Substance: PREGABALIN
     Indication: PAIN
     Route: 048
     Dates: start: 2015, end: 2019
  2. ALMOGRAN [Suspect]
     Active Substance: ALMOTRIPTAN MALATE
     Indication: PAIN
     Dosage: UNIT DOSE : 2 DOSAGE FORMS
     Route: 048
     Dates: start: 2018, end: 2019
  3. LAMALINE (ATROPA BELLADONNA EXTRACT/CAFFEINE/PAPAVER SOMNIFERUM TINCTURE/PARACETAMOL) [Suspect]
     Active Substance: ACETAMINOPHEN\BELLADONNA LEAF\CAFFEINE\OPIUM
     Dosage: UNIT DOSE : 340 MG
     Dates: start: 2015, end: 2019
  4. MAGNESIUM (LACTATE DE) [Suspect]
     Active Substance: MAGNESIUM LACTATE
     Dosage: UNIT DOSE : 4 DOSAGE FORMS
     Dates: end: 2019
  5. PIRACETAM [Suspect]
     Active Substance: PIRACETAM
     Dosage: UNIT DOSE : 800 MG
     Dates: start: 2015, end: 2019
  6. CYMBALTA [Suspect]
     Active Substance: DULOXETINE HYDROCHLORIDE
     Dosage: UNIT DOSE : 60 MG
     Route: 048
     Dates: start: 2015, end: 2019
  7. TRAMADOL (CHLORHYDRATE DE) [Suspect]
     Active Substance: TRAMADOL HYDROCHLORIDE
     Indication: PAIN
     Dosage: UNIT DOSE : 150 MG
     Route: 048
     Dates: end: 2019
  8. ANAFRANIL [Suspect]
     Active Substance: CLOMIPRAMINE HYDROCHLORIDE
     Indication: PAIN
     Route: 048
     Dates: end: 2019

REACTIONS (3)
  - Malaise [Recovered/Resolved]
  - Neuropathy peripheral [Not Recovered/Not Resolved]
  - Balance disorder [Not Recovered/Not Resolved]

NARRATIVE: CASE EVENT DATE: 2017
